FAERS Safety Report 9106281 (Version 1)
Quarter: 2013Q1

REPORT INFORMATION
  Report Type: Spontaneous
  Country: US (occurrence: US)
  Receive Date: 20130220
  Receipt Date: 20130220
  Transmission Date: 20140127
  Serious: No
  Sender: FDA-Public Use
  Company Number: US-ASTRAZENECA-2013SE03372

PATIENT
  Age: 66 Year
  Sex: Female
  Weight: 99.8 kg

DRUGS (5)
  1. RHINOCORT AQUA [Suspect]
     Indication: SINUS DISORDER
     Route: 045
     Dates: start: 201207
  2. DILANTIN [Concomitant]
     Indication: CONVULSION
  3. PHENOBARBITAL [Concomitant]
     Indication: CONVULSION
  4. CLONOZAPAM [Concomitant]
     Indication: CONVULSION
  5. LOVASTATIN [Concomitant]
     Indication: BLOOD CHOLESTEROL

REACTIONS (2)
  - Sinus disorder [Unknown]
  - Intentional drug misuse [Unknown]
